FAERS Safety Report 7973370-5 (Version None)
Quarter: 2011Q4

REPORT INFORMATION
  Report Type: 
  Country: None (occurrence: None)
  Receive Date: 20111213
  Receipt Date: 20110711
  Transmission Date: 20120403
  Serious: Yes (Other)
  Sender: FDA-Public Use
  Company Number: US-AMGEN-USASP2011033266

PATIENT
  Age: 50 Year
  Sex: Female

DRUGS (2)
  1. ARANESP [Suspect]
     Indication: RENAL FAILURE CHRONIC
     Dosage: 500 A?G, Q3WK
     Dates: start: 20020101
  2. COUMADIN [Concomitant]

REACTIONS (1)
  - APLASIA PURE RED CELL [None]
